FAERS Safety Report 13670232 (Version 3)
Quarter: 2020Q1

REPORT INFORMATION
  Report Type: Spontaneous
  Country: FR (occurrence: FR)
  Receive Date: 20170620
  Receipt Date: 20200204
  Transmission Date: 20200409
  Serious: Yes (Hospitalization, Other)
  Sender: FDA-Public Use
  Company Number: FR-ASTRAZENECA-2017SE63732

PATIENT
  Age: 16249 Day
  Sex: Male

DRUGS (28)
  1. CEFAZOLINE FLAVELAB [Suspect]
     Active Substance: CEFAZOLIN SODIUM
     Indication: INTERVERTEBRAL DISCITIS
     Route: 042
     Dates: start: 20170503, end: 20170515
  2. RACECADOTRIL [Suspect]
     Active Substance: RACECADOTRIL
     Indication: DIARRHOEA
     Route: 048
     Dates: start: 20170506, end: 20170516
  3. SPECIAFOLDINE [Concomitant]
     Active Substance: FOLIC ACID
  4. TAREG [Concomitant]
     Active Substance: VALSARTAN
  5. TIORFAN [Suspect]
     Active Substance: RACECADOTRIL
     Indication: DIARRHOEA
     Route: 048
     Dates: start: 20170506, end: 20170516
  6. HYDROCORTISONE. [Concomitant]
     Active Substance: HYDROCORTISONE
     Dosage: 50 MG, Z
  7. PARACETAMOL [Concomitant]
     Active Substance: ACETAMINOPHEN
  8. OXAZEPAM. [Suspect]
     Active Substance: OXAZEPAM
     Indication: ANXIETY
     Route: 048
     Dates: start: 201705
  9. PIPERACILLIN AND TAZOBACTAM [Concomitant]
     Active Substance: PIPERACILLIN SODIUM\TAZOBACTAM SODIUM
     Dosage: UNK
     Dates: start: 20170501
  10. OXYCODONE [Suspect]
     Active Substance: OXYCODONE
     Indication: INTERVERTEBRAL DISCITIS
     Route: 048
     Dates: start: 20170507
  11. OXAZEPAM. [Suspect]
     Active Substance: OXAZEPAM
     Indication: ANXIETY
     Route: 048
     Dates: start: 201705
  12. AMIKACINE [Concomitant]
     Active Substance: AMIKACIN
     Dates: start: 20170501
  13. VANCOMYCINE [Concomitant]
     Active Substance: VANCOMYCIN
     Dosage: UNK
     Dates: start: 20170501
  14. LEVOFLOXACINE ARROW [Suspect]
     Active Substance: LEVOFLOXACIN
     Indication: INTERVERTEBRAL DISCITIS
     Route: 048
     Dates: start: 20170503
  15. PAROXETINE. [Suspect]
     Active Substance: PAROXETINE
     Indication: DEPRESSION
     Route: 048
     Dates: start: 20170508
  16. SALAZOPYRINE [Suspect]
     Active Substance: SULFASALAZINE
     Indication: PSORIATIC ARTHROPATHY
     Route: 048
     Dates: start: 20170507, end: 20170514
  17. COUMADINE [Concomitant]
     Active Substance: WARFARIN SODIUM
  18. SUBUTEX [Concomitant]
     Active Substance: BUPRENORPHINE HYDROCHLORIDE
  19. VALIUM [Concomitant]
     Active Substance: DIAZEPAM
  20. TERCIAN [Concomitant]
     Active Substance: CYAMEMAZINE
     Dosage: 3 DROPS THREE TIMES A DAY
     Route: 048
  21. EBASTINE [Concomitant]
     Active Substance: EBASTINE
  22. HALOPERIDOL. [Concomitant]
     Active Substance: HALOPERIDOL
  23. INEXIUM [Suspect]
     Active Substance: ESOMEPRAZOLE
     Route: 048
     Dates: start: 20170505
  24. NIQUITIN [Suspect]
     Active Substance: NICOTINE
     Indication: EX-TOBACCO USER
     Route: 062
     Dates: start: 20170508
  25. INIPOMP [Concomitant]
     Active Substance: PANTOPRAZOLE SODIUM
  26. KARDEGIC [Suspect]
     Active Substance: ASPIRIN DL-LYSINE
     Indication: CARDIOVASCULAR EVENT PROPHYLAXIS
     Route: 048
     Dates: start: 20170507, end: 20170514
  27. VITAMIN B1+B6 [Concomitant]
  28. NIQUITIN [Suspect]
     Active Substance: NICOTINE
     Indication: EX-TOBACCO USER
     Route: 062
     Dates: start: 20170508

REACTIONS (1)
  - Renal failure [Recovered/Resolved with Sequelae]

NARRATIVE: CASE EVENT DATE: 20170510
